FAERS Safety Report 14198972 (Version 1)
Quarter: 2017Q4

REPORT INFORMATION
  Report Type: Spontaneous
  Country: US (occurrence: US)
  Receive Date: 20171117
  Receipt Date: 20171117
  Transmission Date: 20180321
  Serious: Yes (Life-Threatening, Other)
  Sender: FDA-Public Use
  Company Number: US-WEST-WARD PHARMACEUTICALS CORP.-US-H14001-17-04354

PATIENT

DRUGS (1)
  1. MORPHINE [Suspect]
     Active Substance: MORPHINE
     Indication: ANALGESIC THERAPY
     Route: 041

REACTIONS (5)
  - Brain injury [Unknown]
  - Wrong drug administered [Unknown]
  - Cardiac arrest [Unknown]
  - Unresponsive to stimuli [Unknown]
  - Transcription medication error [Unknown]
